FAERS Safety Report 26133694 (Version 1)
Quarter: 2025Q4

REPORT INFORMATION
  Report Type: Report from Study
  Country: US (occurrence: US)
  Receive Date: 20251209
  Receipt Date: 20251209
  Transmission Date: 20260117
  Serious: Yes (Hospitalization)
  Sender: ALEXION PHARMACEUTICALS
  Company Number: US-AstraZeneca-CH-01007831A

PATIENT
  Age: 19 Year
  Sex: Female
  Weight: 104 kg

DRUGS (1)
  1. SELUMETINIB [Suspect]
     Active Substance: SELUMETINIB
     Indication: Brain neoplasm malignant
     Dosage: 40 MILLIGRAM, BID
     Dates: start: 20250126

REACTIONS (1)
  - Cerebral haemorrhage [Not Recovered/Not Resolved]
